FAERS Safety Report 6245207-6 (Version None)
Quarter: 2009Q2

REPORT INFORMATION
  Report Type: 
  Country: None (occurrence: None)
  Receive Date: 20090625
  Receipt Date: 20090619
  Transmission Date: 20091009
  Serious: Yes (Life-Threatening)
  Sender: FDA-Public Use
  Company Number: PHHO2009MX07751

PATIENT
  Sex: Female

DRUGS (15)
  1. CYCLOSPORINE [Suspect]
     Indication: RENAL TRANSPLANT
     Dosage: 180 MG TWICE DAILY
     Route: 048
     Dates: start: 20030217
  2. MYCOPHENOLATE MOFETIL [Suspect]
     Indication: RENAL TRANSPLANT
     Dosage: 1G TWICE DAILY
     Dates: start: 20030217
  3. DACLIZUMAB [Concomitant]
     Indication: RENAL TRANSPLANT
     Dosage: 160MG DAILY
     Dates: start: 20030217
  4. METHYLPREDNISOLONE [Suspect]
     Indication: RENAL TRANSPLANT
     Dosage: 500 MG DAILY
     Dates: start: 20030216, end: 20030217
  5. PRAVASTATIN SODIUM [Concomitant]
  6. METOPROLOL SUCCINATE [Concomitant]
  7. NIFEDIPINE [Concomitant]
  8. METFORMIN HCL [Concomitant]
  9. CALCIUM CARBONATE [Concomitant]
  10. GLIBENCLAMIDE [Concomitant]
  11. INSULIN [Concomitant]
  12. OMEPRAZOLE [Concomitant]
  13. RANITIDINE [Concomitant]
  14. SULFAMETHOXAZOLE AND TRIMETHOPRIM [Concomitant]
  15. TRIMETHOPRIM [Concomitant]

REACTIONS (9)
  - BLOOD CREATININE DECREASED [None]
  - CATHETER PLACEMENT [None]
  - DEHYDRATION [None]
  - DIARRHOEA [None]
  - GASTROENTERITIS [None]
  - METABOLIC ACIDOSIS [None]
  - RENAL TUBULAR NECROSIS [None]
  - URINE OUTPUT DECREASED [None]
  - VOMITING [None]
